FAERS Safety Report 6808983-7 (Version None)
Quarter: 2010Q2

REPORT INFORMATION
  Report Type: 
  Country: None (occurrence: None)
  Receive Date: 20100630
  Receipt Date: 20091208
  Transmission Date: 20101027
  Serious: No
  Sender: FDA-Public Use
  Company Number: US-PFIZER INC-2009285228

PATIENT
  Sex: Female

DRUGS (2)
  1. NITROGLYCERIN [Suspect]
  2. NIFEDIPINE [Suspect]

REACTIONS (2)
  - ADVERSE EVENT [None]
  - WEIGHT DECREASED [None]
